FAERS Safety Report 5058562-X (Version None)
Quarter: 2006Q2

REPORT INFORMATION
  Report Type: 
  Country: None (occurrence: None)
  Receive Date: 20060627
  Receipt Date: 20060104
  Transmission Date: 20061013
  Serious: Yes (Hospitalization)
  Sender: FDA-Public Use
  Company Number: 430769

PATIENT
  Age: 70 Year
  Sex: Female

DRUGS (5)
  1. XELODA [Suspect]
     Indication: HEPATIC NEOPLASM MALIGNANT
     Dosage: 300 MG DAILY ORAL
     Route: 048
     Dates: start: 20050915
  2. THALOMID [Suspect]
     Indication: HEPATIC NEOPLASM MALIGNANT
     Dosage: 400 MG DAILY ORAL
     Route: 048
     Dates: start: 20050915, end: 20051117
  3. CYMBALTA [Concomitant]
  4. SPIRONOLACTONE [Concomitant]
  5. FUROSEMIDE [Concomitant]

REACTIONS (1)
  - MYOCARDIAL INFARCTION [None]
